FAERS Safety Report 7983428-2 (Version None)
Quarter: 2011Q4

REPORT INFORMATION
  Report Type: 
  Country: None (occurrence: None)
  Receive Date: 20111215
  Receipt Date: 20111207
  Transmission Date: 20120403
  Serious: Yes (Other)
  Sender: FDA-Public Use
  Company Number: US-ABBOTT-11P-163-0881441-00

PATIENT
  Sex: Male

DRUGS (4)
  1. BENICAR [Concomitant]
     Indication: BLOOD PRESSURE
  2. HUMIRA [Suspect]
     Route: 058
     Dates: start: 20111020, end: 20111101
  3. HUMIRA [Suspect]
     Route: 058
     Dates: start: 20111101
  4. HUMIRA [Suspect]
     Indication: PSORIATIC ARTHROPATHY
     Route: 058
     Dates: start: 20110913

REACTIONS (10)
  - INJECTION SITE PAIN [None]
  - BLINDNESS UNILATERAL [None]
  - PAIN [None]
  - COLOUR BLINDNESS [None]
  - ABASIA [None]
  - CEREBROVASCULAR ACCIDENT [None]
  - MALAISE [None]
  - BLOOD PRESSURE INCREASED [None]
  - IMPAIRED DRIVING ABILITY [None]
  - CHEST PAIN [None]
